FAERS Safety Report 4300992-5 (Version None)
Quarter: 2004Q1

REPORT INFORMATION
  Report Type: 
  Country: None (occurrence: None)
  Receive Date: 20040219
  Receipt Date: 20040202
  Transmission Date: 20041129
  Serious: Yes (Hospitalization, Disabling)
  Sender: FDA-Public Use
  Company Number: 701315

PATIENT
  Age: 45 Year
  Sex: Male
  Weight: 73 kg

DRUGS (1)
  1. AMEVIVE [Suspect]
     Indication: PSORIASIS
     Dosage: 15 MG QW IM
     Route: 030
     Dates: start: 20030320, end: 20030502

REACTIONS (5)
  - DISEASE PROGRESSION [None]
  - DISEASE RECURRENCE [None]
  - ISCHAEMIC STROKE [None]
  - LYMPHOPENIA [None]
  - PSORIASIS [None]
